FAERS Safety Report 22145050 (Version 1)
Quarter: 2023Q1

REPORT INFORMATION
  Report Type: Spontaneous
  Country: AU (occurrence: AU)
  Receive Date: 20230328
  Receipt Date: 20230328
  Transmission Date: 20230417
  Serious: Yes (Other)
  Sender: FDA-Public Use
  Company Number: AU-AstraZeneca-2023A063124

PATIENT

DRUGS (5)
  1. ZOLADEX [Suspect]
     Active Substance: GOSERELIN ACETATE
     Indication: Breast cancer metastatic
     Dosage: UNK
     Route: 058
  2. ZOLADEX [Suspect]
     Active Substance: GOSERELIN ACETATE
     Indication: Breast cancer metastatic
     Dosage: UNK
     Route: 065
  3. RIBOCICLIB [Suspect]
     Active Substance: RIBOCICLIB
     Indication: Breast cancer metastatic
     Dosage: UNK
     Route: 065
  4. DENOSUMAB [Suspect]
     Active Substance: DENOSUMAB
     Indication: Breast cancer metastatic
     Dosage: UNK
     Route: 065
  5. LETROZOLE [Suspect]
     Active Substance: LETROZOLE
     Indication: Breast cancer metastatic
     Dosage: UNK
     Route: 065

REACTIONS (7)
  - Oesophageal stenosis [Unknown]
  - Gastric ulcer [Unknown]
  - Dysphagia [Unknown]
  - Eyelid ptosis [Unknown]
  - Pleural effusion [Unknown]
  - Bone lesion [Unknown]
  - Dyspnoea [Unknown]
